FAERS Safety Report 24215535 (Version 1)
Quarter: 2024Q3

REPORT INFORMATION
  Report Type: Spontaneous
  Country: US (occurrence: US)
  Receive Date: 20240816
  Receipt Date: 20240816
  Transmission Date: 20241016
  Serious: Yes (Death, Other)
  Sender: AMGEN
  Company Number: US-AMGEN-USASP2024159925

PATIENT
  Sex: Female

DRUGS (1)
  1. BEVACIZUMAB [Suspect]
     Active Substance: BEVACIZUMAB
     Indication: Retinopathy of prematurity
     Dosage: 0.625 MILLIGRAM/0.025ML

REACTIONS (4)
  - Glaucoma [Unknown]
  - Multimorbidity [Fatal]
  - Drug effective for unapproved indication [Unknown]
  - Off label use [Unknown]
